FAERS Safety Report 5706060-X (Version None)
Quarter: 2008Q2

REPORT INFORMATION
  Report Type: 
  Country: None (occurrence: None)
  Receive Date: 20080415
  Receipt Date: 20080403
  Transmission Date: 20081010
  Serious: Yes (Other)
  Sender: FDA-Public Use
  Company Number: US-PFIZER INC-2008003647

PATIENT
  Sex: Female
  Weight: 79.8 kg

DRUGS (4)
  1. CHANTIX [Suspect]
     Indication: SMOKING CESSATION THERAPY
     Route: 048
     Dates: start: 20070601, end: 20071105
  2. ALL OTHER THERAPEUTIC PRODUCTS [Concomitant]
  3. ZOLOFT [Concomitant]
  4. VICODIN [Concomitant]

REACTIONS (3)
  - INCORRECT DOSE ADMINISTERED [None]
  - KNEE ARTHROPLASTY [None]
  - NAUSEA [None]
